FAERS Safety Report 21394942 (Version 1)
Quarter: 2022Q3

REPORT INFORMATION
  Report Type: Report from Study
  Country: CA (occurrence: CA)
  Receive Date: 20220930
  Receipt Date: 20220930
  Transmission Date: 20221026
  Serious: Yes (Other)
  Sender: FDA-Public Use
  Company Number: CA-NOVARTISPH-NVSC2022CA154506

PATIENT
  Age: 78 Year
  Sex: Female

DRUGS (4)
  1. ELTROMBOPAG OLAMINE [Suspect]
     Active Substance: ELTROMBOPAG OLAMINE
     Indication: Aplastic anaemia
     Dosage: 150 MG, QD
     Route: 048
     Dates: start: 20220624
  2. ELTROMBOPAG OLAMINE [Suspect]
     Active Substance: ELTROMBOPAG OLAMINE
     Dosage: 100 MG, QD
     Route: 048
     Dates: start: 202207
  3. ELTROMBOPAG OLAMINE [Suspect]
     Active Substance: ELTROMBOPAG OLAMINE
     Dosage: 100 MG, QD (START DATE: 18 JUL)
     Route: 065
  4. ELTROMBOPAG OLAMINE [Suspect]
     Active Substance: ELTROMBOPAG OLAMINE
     Dosage: 50 MG, QD (3 TABLETS)
     Route: 065

REACTIONS (11)
  - Renal cancer [Unknown]
  - Eye pain [Recovered/Resolved]
  - Stomatitis [Not Recovered/Not Resolved]
  - Mouth haemorrhage [Unknown]
  - Decreased appetite [Unknown]
  - Contusion [Unknown]
  - Abnormal dreams [Unknown]
  - Headache [Recovered/Resolved]
  - Eating disorder [Unknown]
  - Diarrhoea [Unknown]
  - Functional gastrointestinal disorder [Unknown]

NARRATIVE: CASE EVENT DATE: 20220720
